FAERS Safety Report 12591524 (Version 1)
Quarter: 2016Q3

REPORT INFORMATION
  Report Type: Spontaneous
  Country: US (occurrence: None)
  Receive Date: 20160725
  Receipt Date: 20160725
  Transmission Date: 20161109
  Serious: Yes (Hospitalization)
  Sender: FDA-Public Use
  Company Number: None

PATIENT
  Age: 69 Year
  Sex: Male
  Weight: 113.6 kg

DRUGS (4)
  1. MERCAPTOPURINE. [Suspect]
     Active Substance: MERCAPTOPURINE
     Dates: end: 20160717
  2. METHOTREXATE. [Suspect]
     Active Substance: METHOTREXATE
     Dates: end: 20160627
  3. CYTARABINE. [Suspect]
     Active Substance: CYTARABINE
     Dates: end: 20160717
  4. CYCLOPHOSPHAMIDE. [Suspect]
     Active Substance: CYCLOPHOSPHAMIDE
     Dates: end: 20160708

REACTIONS (5)
  - Nausea [None]
  - Bacteraemia [None]
  - Vomiting [None]
  - Pyrexia [None]
  - Bacterial infection [None]

NARRATIVE: CASE EVENT DATE: 20160717
